FAERS Safety Report 6240386-9 (Version None)
Quarter: 2009Q2

REPORT INFORMATION
  Report Type: 
  Country: None (occurrence: None)
  Receive Date: 20090623
  Receipt Date: 20081021
  Transmission Date: 20091009
  Serious: No
  Sender: FDA-Public Use
  Company Number: US-ASTRAZENECA-2008UW12028

PATIENT
  Age: 47 Year
  Sex: Male
  Weight: 68 kg

DRUGS (3)
  1. PULMICORT FLEXHALER [Suspect]
     Indication: ASTHMA
     Route: 055
     Dates: start: 20080301
  2. PULMICORT [Concomitant]
  3. XANAX [Concomitant]

REACTIONS (10)
  - ABDOMINAL DISCOMFORT [None]
  - AGITATION [None]
  - ASTHMA [None]
  - DRUG INEFFECTIVE [None]
  - FEELING JITTERY [None]
  - MUSCLE SPASMS [None]
  - NAUSEA [None]
  - PALPITATIONS [None]
  - PERSONALITY CHANGE [None]
  - PNEUMONIA [None]
